FAERS Safety Report 22286991 (Version 1)
Quarter: 2023Q2

REPORT INFORMATION
  Report Type: Spontaneous
  Country: CN (occurrence: CN)
  Receive Date: 20230505
  Receipt Date: 20230505
  Transmission Date: 20230721
  Serious: Yes (Other)
  Sender: FDA-Public Use
  Company Number: CN-STRIDES ARCOLAB LIMITED-2023SP006526

PATIENT

DRUGS (6)
  1. PREDNISOLONE [Suspect]
     Active Substance: PREDNISOLONE
     Indication: Diffuse large B-cell lymphoma
     Dosage: 100 MILLIGRAM, CYCLICAL (EVERY 21 DAYS ) (AS A PART OF RCDOP REGIMEN ON DAYS 2-6 OF EACH CYCLE)
     Route: 042
  2. PREDNISOLONE [Suspect]
     Active Substance: PREDNISOLONE
     Dosage: 100 MILLIGRAM (EVERY 21 DAYS )(AS A PART OF RCDOP REGIMEN ON DAYS 2-6 OF EACH CYCLE)
     Route: 048
  3. RITUXIMAB [Suspect]
     Active Substance: RITUXIMAB
     Indication: Diffuse large B-cell lymphoma
     Dosage: 375 MILLIGRAM/SQ. METER, (EVERY 21 DAYS ) CYCLICAL (AS A PART OF RCDOP REGIMEN ON DAY 1)
     Route: 042
  4. CYCLOPHOSPHAMIDE [Suspect]
     Active Substance: CYCLOPHOSPHAMIDE
     Indication: Diffuse large B-cell lymphoma
     Dosage: 750 MILLIGRAM/SQ. METER, (EVERY 21 DAYS )CYCLICAL (AS A PART OF RCDOP REGIMEN)
     Route: 042
  5. DOXORUBICIN [Suspect]
     Active Substance: DOXORUBICIN
     Indication: Diffuse large B-cell lymphoma
     Dosage: UNK, CYCLICAL (EVERY 21 DAYS ) (30-45 MG/M2 AS A PART OF RCDOP REGIMEN)
     Route: 042
  6. VINCRISTINE [Suspect]
     Active Substance: VINCRISTINE
     Indication: Diffuse large B-cell lymphoma
     Dosage: 1.4 MILLIGRAM/SQ. METER, (EVERY 21 DAYS )CYCLICAL (AS A PART OF RCDOP REGIMEN ON DAY 2)
     Route: 042

REACTIONS (1)
  - Cardiotoxicity [Unknown]
